FAERS Safety Report 7205890-5 (Version None)
Quarter: 2010Q4

REPORT INFORMATION
  Report Type: 
  Country: None (occurrence: None)
  Receive Date: 20101231
  Receipt Date: 20101012
  Transmission Date: 20110411
  Serious: Yes (Other)
  Sender: FDA-Public Use
  Company Number: CA-SANOFI-AVENTIS-2010SA062680

PATIENT
  Age: 58 Year
  Sex: Female
  Weight: 108 kg

DRUGS (4)
  1. MULTAQ [Suspect]
     Indication: ATRIAL FIBRILLATION
     Route: 048
     Dates: start: 20100508, end: 20100630
  2. ACETAMINOPHEN [Concomitant]
     Route: 048
  3. HYDROCHLOROTHIAZIDE [Concomitant]
     Route: 048
  4. WARFARIN [Concomitant]
     Indication: ATRIAL FIBRILLATION
     Dosage: USE AS DIRECTED
     Route: 048

REACTIONS (5)
  - ABDOMINAL PAIN [None]
  - DEPRESSION [None]
  - HEADACHE [None]
  - TEARFULNESS [None]
  - VISUAL IMPAIRMENT [None]
